FAERS Safety Report 7786861-7 (Version None)
Quarter: 2011Q3

REPORT INFORMATION
  Report Type: 
  Country: None (occurrence: None)
  Receive Date: 20110929
  Receipt Date: 20110920
  Transmission Date: 20111222
  Serious: Yes (Hospitalization)
  Sender: FDA-Public Use
  Company Number: US-MERCK-1106USA02217

PATIENT
  Age: 47 Year
  Sex: Female

DRUGS (8)
  1. FOSAMAX [Suspect]
     Route: 048
     Dates: start: 20000101, end: 20090101
  2. FOSAMAX [Suspect]
     Indication: OSTEOPOROSIS
     Route: 048
     Dates: start: 20000101, end: 20090101
  3. FOSAMAX [Suspect]
     Route: 048
     Dates: start: 20000101, end: 20090101
  4. VITAMINS (UNSPECIFIED) [Concomitant]
     Route: 065
  5. EVISTA [Concomitant]
     Indication: OSTEOPOROSIS
     Route: 065
     Dates: start: 20080101
  6. FOSAMAX [Suspect]
     Indication: OSTEOPENIA
     Route: 048
     Dates: start: 20000101, end: 20090101
  7. CALCIUM (UNSPECIFIED) [Concomitant]
     Route: 065
     Dates: start: 19850101
  8. VITAMIN D (UNSPECIFIED) [Concomitant]
     Route: 065
     Dates: start: 19950101

REACTIONS (10)
  - ANKLE FRACTURE [None]
  - FACE INJURY [None]
  - POSTMENOPAUSE [None]
  - LOW TURNOVER OSTEOPATHY [None]
  - BREAST MASS [None]
  - FALL [None]
  - FEMUR FRACTURE [None]
  - FIBULA FRACTURE [None]
  - BREAST HYPOPLASIA [None]
  - BREAST CYST [None]
